FAERS Safety Report 11941134 (Version 2)
Quarter: 2016Q1

REPORT INFORMATION
  Report Type: Spontaneous
  Country: US (occurrence: US)
  Receive Date: 20160122
  Receipt Date: 20160212
  Transmission Date: 20160526
  Serious: No
  Sender: FDA-Public Use
  Company Number: US-009507513-1601USA007612

PATIENT
  Age: 51 Year
  Sex: Male
  Weight: 106.58 kg

DRUGS (17)
  1. METFORMIN [Concomitant]
     Active Substance: METFORMIN HYDROCHLORIDE
  2. FEXOFENADINE HYDROCHLORIDE. [Concomitant]
     Active Substance: FEXOFENADINE HYDROCHLORIDE
  3. CYANOCOBALAMIN. [Concomitant]
     Active Substance: CYANOCOBALAMIN
  4. TESTOSTERONE. [Concomitant]
     Active Substance: TESTOSTERONE
  5. ASPIRIN. [Concomitant]
     Active Substance: ASPIRIN
  6. LORTAB [Concomitant]
     Active Substance: ACETAMINOPHEN\HYDROCODONE BITARTRATE
  7. ADDERALL [Concomitant]
     Active Substance: AMPHETAMINE ASPARTATE\AMPHETAMINE SULFATE\DEXTROAMPHETAMINE SACCHARATE\DEXTROAMPHETAMINE SULFATE
  8. CRESTOR [Concomitant]
     Active Substance: ROSUVASTATIN CALCIUM
  9. BELSOMRA [Suspect]
     Active Substance: SUVOREXANT
     Indication: INSOMNIA
     Dosage: 10-20 MG, QD
     Route: 048
     Dates: start: 20150228
  10. FIBER [Concomitant]
     Active Substance: PSYLLIUM HUSK
  11. AIR, MEDICAL [Concomitant]
  12. ACIDOPHILUS [Concomitant]
     Active Substance: LACTOBACILLUS ACIDOPHILUS
  13. CARVEDILOL. [Concomitant]
     Active Substance: CARVEDILOL
  14. GLUTAMINE/LEVOGLUTAMIDE [Concomitant]
  15. UBIDECARENONE [Concomitant]
     Active Substance: UBIDECARENONE
  16. GUAIFENESIN. [Concomitant]
     Active Substance: GUAIFENESIN
  17. CHOLECALCIFEROL [Concomitant]
     Active Substance: CHOLECALCIFEROL

REACTIONS (4)
  - Visual perseveration [Recovered/Resolved]
  - Thinking abnormal [Recovered/Resolved]
  - Nightmare [Recovered/Resolved]
  - Feeling abnormal [Recovered/Resolved]

NARRATIVE: CASE EVENT DATE: 20150301
